FAERS Safety Report 6801918-2 (Version None)
Quarter: 2010Q2

REPORT INFORMATION
  Report Type: 
  Country: None (occurrence: None)
  Receive Date: 20100629
  Receipt Date: 20100621
  Transmission Date: 20101027
  Serious: Yes (Other)
  Sender: FDA-Public Use
  Company Number: US-ROCHE-711305

PATIENT
  Sex: Female
  Weight: 54.4 kg

DRUGS (1)
  1. PEGASYS [Suspect]
     Indication: DRUG USE FOR UNKNOWN INDICATION
     Route: 065

REACTIONS (8)
  - ABASIA [None]
  - AMNESIA [None]
  - ASTHENIA [None]
  - BEDRIDDEN [None]
  - DISTURBANCE IN ATTENTION [None]
  - FALL [None]
  - MALAISE [None]
  - PROCEDURAL COMPLICATION [None]
